FAERS Safety Report 6308117-1 (Version None)
Quarter: 2009Q3

REPORT INFORMATION
  Report Type: 
  Country: None (occurrence: None)
  Receive Date: 20090813
  Receipt Date: 20090730
  Transmission Date: 20100115
  Serious: Yes (Other)
  Sender: FDA-Public Use
  Company Number: US-CELGENEUS-163-21880-09080707

PATIENT
  Sex: Male

DRUGS (2)
  1. REVLIMID [Suspect]
     Route: 048
     Dates: start: 20090701
  2. ALLOPURINOL [Concomitant]
     Route: 065

REACTIONS (2)
  - TUMOUR FLARE [None]
  - WHITE BLOOD CELL COUNT INCREASED [None]
